FAERS Safety Report 14526712 (Version 1)
Quarter: 2018Q1

REPORT INFORMATION
  Report Type: Spontaneous
  Country: GB (occurrence: GB)
  Receive Date: 20180213
  Receipt Date: 20180213
  Transmission Date: 20180509
  Serious: Yes (Other)
  Sender: FDA-Public Use
  Company Number: GB-SA-2018SA036449

PATIENT
  Age: 47 Year
  Sex: Male

DRUGS (2)
  1. ALIROCUMAB PREFILLED PEN [Suspect]
     Active Substance: ALIROCUMAB
  2. PRALUENT [Suspect]
     Active Substance: ALIROCUMAB
     Route: 058

REACTIONS (7)
  - Cerebral palsy [Unknown]
  - Glassy eyes [Unknown]
  - Lip disorder [Unknown]
  - Skin discolouration [Unknown]
  - Feeling abnormal [Unknown]
  - Dysarthria [Unknown]
  - Anxiety [Unknown]
